FAERS Safety Report 8180827-3 (Version None)
Quarter: 2012Q1

REPORT INFORMATION
  Report Type: 
  Country: None (occurrence: None)
  Receive Date: 20120302
  Receipt Date: 20120216
  Transmission Date: 20120608
  Serious: Yes (Disabling, Other)
  Sender: FDA-Public Use
  Company Number: US-ROCHE-1040826

PATIENT
  Sex: Female
  Weight: 58.112 kg

DRUGS (9)
  1. LYRICA [Suspect]
     Indication: MYALGIA
  2. TRAMADOL HCL [Suspect]
     Indication: HEADACHE
  3. VITAMIN D [Concomitant]
  4. VALIUM [Suspect]
     Indication: HEADACHE
  5. ACETAMINOPHEN [Suspect]
     Indication: HEADACHE
  6. LYRICA [Suspect]
     Indication: FIBROMYALGIA
  7. LYRICA [Suspect]
     Indication: NEURALGIA
     Route: 048
     Dates: start: 20100601, end: 20100601
  8. METHYLPREDNISOLONE [Concomitant]
     Indication: MYALGIA
  9. IBUPROFEN [Suspect]
     Indication: HEADACHE

REACTIONS (5)
  - MIGRAINE WITH AURA [None]
  - HEADACHE [None]
  - CONNECTIVE TISSUE DISORDER [None]
  - DIPLOPIA [None]
  - DRUG INEFFECTIVE [None]
